FAERS Safety Report 6470222-7 (Version None)
Quarter: 2009Q4

REPORT INFORMATION
  Report Type: 
  Country: None (occurrence: None)
  Receive Date: 20091203
  Receipt Date: 20090610
  Transmission Date: 20100525
  Serious: Yes (Death)
  Sender: FDA-Public Use
  Company Number: US-ELI_LILLY_AND_COMPANY-US200711006987

PATIENT
  Sex: Male

DRUGS (8)
  1. ZYPREXA [Suspect]
     Dosage: 20 MG, UNK
     Dates: start: 20030330, end: 20040707
  2. ZYPREXA [Suspect]
     Dosage: 10 MG, UNK
     Dates: start: 20030905, end: 20030929
  3. ZYPREXA [Suspect]
     Dosage: 30 MG, UNK
     Dates: start: 20040708
  4. ZYPREXA ZYDIS [Suspect]
     Dosage: UNK, UNK
  5. RISPERIDONE [Concomitant]
     Dates: start: 20031001
  6. WELLBUTRIN [Concomitant]
     Dates: start: 20031001
  7. ZOLOFT [Concomitant]
     Dosage: UNK, UNK
     Dates: start: 20031001
  8. HALDOL [Concomitant]
     Dates: start: 20030901

REACTIONS (5)
  - ANXIETY [None]
  - DEATH [None]
  - EMOTIONAL DISTRESS [None]
  - OVERDOSE [None]
  - TYPE 2 DIABETES MELLITUS [None]
